FAERS Safety Report 8065211-5 (Version None)
Quarter: 2012Q1

REPORT INFORMATION
  Report Type: 
  Country: None (occurrence: None)
  Receive Date: 20120124
  Receipt Date: 20120119
  Transmission Date: 20120608
  Serious: Yes (Other)
  Sender: FDA-Public Use
  Company Number: US-TEVA-318392USA

PATIENT
  Sex: Male

DRUGS (1)
  1. WARFARIN SODIUM [Suspect]
     Dates: end: 20111121

REACTIONS (4)
  - BONE PAIN [None]
  - BACK PAIN [None]
  - ARTHRALGIA [None]
  - WITHDRAWAL SYNDROME [None]
